FAERS Safety Report 8415221-0 (Version None)
Quarter: 2012Q2

REPORT INFORMATION
  Report Type: 
  Country: None (occurrence: None)
  Receive Date: 20120606
  Receipt Date: 20120523
  Transmission Date: 20120825
  Serious: Yes (Death, Hospitalization)
  Sender: FDA-Public Use
  Company Number: DE-RANBAXY-2009RR-26526

PATIENT
  Age: 80 Year
  Sex: Female
  Weight: 59 kg

DRUGS (19)
  1. OMEPRAZOLE [Suspect]
     Indication: PROPHYLAXIS AGAINST GASTROINTESTINAL ULCER
     Dosage: 20 MG, QD
     Route: 048
     Dates: start: 20081101, end: 20090503
  2. FERROUS SULFATE TAB [Concomitant]
     Indication: IRON DEFICIENCY
     Dosage: 100 MG, QD
     Route: 048
     Dates: start: 20081101, end: 20090504
  3. CORDANUM [Suspect]
     Indication: TACHYARRHYTHMIA
     Dosage: 50 MG, QD
     Route: 048
     Dates: start: 20081101, end: 20090504
  4. SIMVASTATIN [Suspect]
     Indication: HYPERLIPIDAEMIA
     Dosage: 40 MG, QD
     Route: 048
     Dates: start: 20081101, end: 20090505
  5. DIGITOXIN TAB [Concomitant]
     Indication: TACHYARRHYTHMIA
     Dosage: 0.07 MG, UNK
     Route: 048
     Dates: start: 20081101
  6. XIPAMIDE [Concomitant]
     Indication: HYPERTENSION
     Dosage: 10 MG, QD
     Route: 048
     Dates: start: 20081101, end: 20090503
  7. PREDNISOLONE [Concomitant]
     Dosage: 25 MG, QD
     Route: 065
     Dates: start: 20090527
  8. PREDNISOLONE [Concomitant]
     Dosage: 5 MG, 1/WEEK
     Route: 065
  9. FALITHROM [Suspect]
     Indication: TACHYARRHYTHMIA
     Dosage: 3 MG, QD
     Route: 048
     Dates: start: 20081101, end: 20090504
  10. SEROQUEL [Suspect]
     Indication: RESTLESSNESS
     Dosage: 25 MG, QD
     Route: 048
     Dates: start: 20081101
  11. AMLODIPINE [Suspect]
     Indication: HYPERTENSION
     Dosage: 5 MG, QD
     Route: 048
     Dates: start: 20081101, end: 20090515
  12. FOLIC ACID [Concomitant]
     Indication: IMMUNOSUPPRESSANT DRUG THERAPY
     Dosage: UNK
     Route: 048
     Dates: start: 20081101, end: 20090504
  13. PREDNISOLONE [Concomitant]
     Dosage: 50 MG, QD
     Route: 065
     Dates: start: 20090526
  14. METHOTREXATE [Suspect]
     Indication: RHEUMATOID ARTHRITIS
     Dosage: 10 ML, QD
     Route: 058
     Dates: start: 20081101, end: 20090504
  15. ACTONEL 35 PLUS [Concomitant]
     Indication: OSTEOPOROSIS
     Dosage: 1 DF, QD
     Route: 048
     Dates: start: 20040101, end: 20090505
  16. PREDNISOLONE [Concomitant]
     Indication: RHEUMATOID ARTHRITIS
     Dosage: 5 MG, QD
     Route: 048
     Dates: start: 20020101
  17. PREDNISOLONE [Concomitant]
     Dosage: 100 MG, UNK
     Dates: start: 20090520
  18. TORSEMIDE [Suspect]
     Indication: HYPERTENSION
     Dosage: 200 MG, QD
     Route: 048
     Dates: start: 20081101
  19. RAMIPRIL [Suspect]
     Indication: HYPERTENSION
     Dosage: 2.5 MG, QD
     Route: 048
     Dates: start: 20000101

REACTIONS (9)
  - TRANSAMINASES INCREASED [None]
  - RESPIRATORY FAILURE [None]
  - DRUG INTERACTION [None]
  - VOMITING [None]
  - MALAISE [None]
  - ALVEOLITIS [None]
  - NAUSEA [None]
  - ABDOMINAL PAIN [None]
  - CHOLELITHIASIS [None]
